FAERS Safety Report 12645086 (Version 1)
Quarter: 2016Q3

REPORT INFORMATION
  Report Type: Spontaneous
  Country: US (occurrence: US)
  Receive Date: 20160811
  Receipt Date: 20160811
  Transmission Date: 20161109
  Serious: No
  Sender: FDA-Public Use
  Company Number: US-BAYER-2016-145513

PATIENT
  Age: 65 Year
  Sex: Female
  Weight: 55.78 kg

DRUGS (3)
  1. MIRAFIBER SUGAR FREE ORANGE POWDER [Suspect]
     Active Substance: METHYLCELLULOSES
     Indication: ROUTINE HEALTH MAINTENANCE
     Dosage: 1 DOSE, ONCE
     Route: 048
     Dates: start: 20160725, end: 20160725
  2. MIRALAX [Suspect]
     Active Substance: POLYETHYLENE GLYCOL 3350
     Indication: ROUTINE HEALTH MAINTENANCE
     Dosage: 1 DOSE, QD
     Route: 048
  3. METAMUCIL [Suspect]
     Active Substance: PLANTAGO SEED
     Dosage: UNK

REACTIONS (2)
  - Burn oesophageal [Not Recovered/Not Resolved]
  - Wrong technique in product usage process [None]

NARRATIVE: CASE EVENT DATE: 20160725
